FAERS Safety Report 7428673 (Version 4)
Quarter: 2012Q4

REPORT INFORMATION
  Report Type: 
  Country: US (occurrence: US)
  Receive Date: 20100623
  Receipt Date: 20120912
  Transmission Date: 20130627
  Serious: Yes (Hospitalization)
  Sender: FDA-Public Use
  Company Number: US-BAYER-201025566NA

PATIENT
  Age: 18 Year
  Sex: Female
  Weight: 108.84 kg

DRUGS (8)
  1. YASMIN [Suspect]
     Dosage: UNK
     Dates: start: 2005, end: 2009
  2. OCELLA [Suspect]
     Dosage: UNK
     Dates: start: 2005, end: 2009
  3. FLUOXETINE [Concomitant]
  4. SEROQUEL [Concomitant]
  5. ADDERALL [Concomitant]
     Indication: ATTENTION DEFICIT/HYPERACTIVITY DISORDER
     Dosage: UNK
     Dates: start: 2003, end: 2007
  6. PERCOCET [Concomitant]
     Indication: PAIN
     Dosage: UNK
     Dates: start: 2003, end: 2007
  7. ABILIFY [Concomitant]
     Indication: BIPOLAR DISORDER
     Dosage: UNK
     Dates: start: 2003, end: 2007
  8. IMITREX [Concomitant]
     Dosage: UNK
     Dates: start: 2005, end: 2012

REACTIONS (2)
  - Cholecystectomy [Unknown]
  - Injury [Unknown]
